FAERS Safety Report 20374180 (Version 1)
Quarter: 2022Q1

REPORT INFORMATION
  Report Type: Spontaneous
  Country: US (occurrence: US)
  Receive Date: 20220125
  Receipt Date: 20220125
  Transmission Date: 20220423
  Serious: No
  Sender: FDA-Public Use
  Company Number: US-PFIZER INC-202200111471

PATIENT
  Age: 47 Year
  Weight: 80.74 kg

DRUGS (1)
  1. PAXLOVID [Suspect]
     Active Substance: NIRMATRELVIR\RITONAVIR
     Indication: COVID-19
     Dosage: UNK (TAKE 3 IN THE MORNING AND 3 IN THE EVENING AND I TOOK 3 IN THE EVENING)

REACTIONS (2)
  - Dysgeusia [Unknown]
  - Product after taste [Unknown]

NARRATIVE: CASE EVENT DATE: 20220119
